FAERS Safety Report 9177286 (Version 2)
Quarter: 2013Q1

REPORT INFORMATION
  Report Type: Report from Study
  Country: JP (occurrence: JP)
  Receive Date: 20130321
  Receipt Date: 20130327
  Transmission Date: 20140127
  Serious: Yes (Death)
  Sender: FDA-Public Use
  Company Number: JP-ASTELLAS-2013US003090

PATIENT
  Age: 64 Year
  Sex: Male
  Weight: 58 kg

DRUGS (14)
  1. ERLOTINIB TABLET [Suspect]
     Indication: PANCREATIC CARCINOMA
     Dosage: 100 MG, UID/QD
     Route: 048
     Dates: start: 20120508, end: 20120522
  2. GEMCITABINE HYDROCHLORIDE [Concomitant]
     Indication: PANCREATIC CARCINOMA
     Dosage: 1000 MG/M2, UID/QD
     Route: 041
     Dates: start: 20120502, end: 20120502
  3. GEMCITABINE HYDROCHLORIDE [Concomitant]
     Dosage: 1000 MG/M2, UID/QD
     Route: 041
     Dates: start: 20120508, end: 20120508
  4. GEMCITABINE HYDROCHLORIDE [Concomitant]
     Dosage: 1000 MG/M2, UID/QD
     Route: 041
     Dates: start: 20120515, end: 20120515
  5. GEMCITABINE HYDROCHLORIDE [Concomitant]
     Dosage: 1000 MG/M2, UID/QD
     Route: 041
     Dates: start: 20120529, end: 20120529
  6. GEMCITABINE HYDROCHLORIDE [Concomitant]
     Dosage: 1000 MG/M2, UID/QD
     Route: 041
     Dates: start: 20120605, end: 20120605
  7. GEMCITABINE HYDROCHLORIDE [Concomitant]
     Dosage: 1000 MG/M2, UID/QD
     Route: 041
     Dates: start: 20120612, end: 20120612
  8. GEMCITABINE HYDROCHLORIDE [Concomitant]
     Dosage: 1000 MG/M2, UID/QD
     Route: 041
     Dates: start: 20120626, end: 20120626
  9. GEMCITABINE HYDROCHLORIDE [Concomitant]
     Dosage: 1000 MG/M2, UID/QD
     Route: 041
     Dates: start: 20120703, end: 20120703
  10. GEMCITABINE HYDROCHLORIDE [Concomitant]
     Dosage: 1000 MG/M2, UID/QD
     Route: 041
     Dates: start: 20120710, end: 20120710
  11. NAIXAN                             /00256201/ [Concomitant]
     Indication: PANCREATIC CARCINOMA
     Dosage: 400 MG, UID/QD
     Route: 048
  12. AMLODIN [Concomitant]
     Indication: PRODUCT USED FOR UNKNOWN INDICATION
     Dosage: 2.5 MG, UID/QD
     Route: 048
     Dates: start: 2012
  13. MYSLEE [Concomitant]
     Indication: PRODUCT USED FOR UNKNOWN INDICATION
     Dosage: 5 MG, UID/QD
     Route: 048
     Dates: start: 20120508, end: 20120710
  14. MAGMITT [Concomitant]
     Indication: PROPHYLAXIS
     Dosage: 3990 MG, UID/QD
     Route: 048
     Dates: start: 20120513, end: 20120522

REACTIONS (4)
  - Death [Fatal]
  - Proteinuria [Not Recovered/Not Resolved]
  - Dermatitis acneiform [Recovered/Resolved]
  - Hepatic function abnormal [Recovering/Resolving]
